FAERS Safety Report 5097076-8 (Version None)
Quarter: 2006Q3

REPORT INFORMATION
  Report Type: 
  Country: None (occurrence: None)
  Receive Date: 20060901
  Receipt Date: 20060815
  Transmission Date: 20061208
  Serious: Yes (Hospitalization)
  Sender: FDA-Public Use
  Company Number: US200608003822

PATIENT
  Age: 42 Year
  Sex: Male
  Weight: 113.4 kg

DRUGS (3)
  1. ZYPREXA [Suspect]
     Indication: PARANOIA
     Dosage: 10 MG
     Dates: start: 19970101, end: 20030301
  2. ZYPREXA [Suspect]
     Indication: SCHIZOPHRENIA
     Dosage: 10 MG
     Dates: start: 19970101, end: 20030301
  3. NPH INSULIN [Concomitant]

REACTIONS (4)
  - DIABETES MELLITUS [None]
  - FOOT AMPUTATION [None]
  - PRESCRIBED OVERDOSE [None]
  - TOE AMPUTATION [None]
